FAERS Safety Report 6878103-1 (Version None)
Quarter: 2010Q2

REPORT INFORMATION
  Report Type: 
  Country: None (occurrence: None)
  Receive Date: 20100616
  Receipt Date: 20100222
  Transmission Date: 20101027
  Serious: No
  Sender: FDA-Public Use
  Company Number: DSA_42670_2010

PATIENT
  Sex: Female

DRUGS (7)
  1. XENAZINE [Suspect]
     Indication: HUNTINGTON'S CHOREA
     Dosage: 12.5 MG QD, 12.5 MG BID ORAL, 6.25 MG QD
     Route: 048
     Dates: start: 20100218
  2. ENSURE [Concomitant]
  3. ZOLOFT [Concomitant]
  4. KLONOPIN [Concomitant]
  5. SEROQUEL [Concomitant]
  6. BENADRYL [Concomitant]
  7. ESTRADIOL [Concomitant]

REACTIONS (6)
  - DIARRHOEA [None]
  - DRUG ADMINISTRATION ERROR [None]
  - GINGIVAL PAIN [None]
  - HEADACHE [None]
  - ORAL DISCOMFORT [None]
  - STOMATITIS [None]
